FAERS Safety Report 19432342 (Version 2)
Quarter: 2022Q3

REPORT INFORMATION
  Report Type: Spontaneous
  Country: ES (occurrence: ES)
  Receive Date: 20210618
  Receipt Date: 20220714
  Transmission Date: 20221026
  Serious: Yes (Other)
  Sender: FDA-Public Use
  Company Number: ES-SUN PHARMACEUTICAL INDUSTRIES LTD-2021R1-300248

PATIENT
  Sex: Female

DRUGS (3)
  1. PROPYLTHIOURACIL [Suspect]
     Active Substance: PROPYLTHIOURACIL
     Indication: Basedow^s disease
     Dosage: UNK
     Route: 064
  2. PYRIDOXINE [Suspect]
     Active Substance: PYRIDOXINE
     Indication: Hyperemesis gravidarum
     Dosage: UNK
     Route: 064
  3. DOXYLAMINE [Suspect]
     Active Substance: DOXYLAMINE
     Indication: Hyperemesis gravidarum
     Dosage: UNK
     Route: 064

REACTIONS (2)
  - Foetal exposure during pregnancy [Unknown]
  - Hypothyroidic goitre [Unknown]
